FAERS Safety Report 5312207-X (Version None)
Quarter: 2007Q2

REPORT INFORMATION
  Report Type: 
  Country: None (occurrence: None)
  Receive Date: 20070430
  Receipt Date: 20060828
  Transmission Date: 20071010
  Serious: No
  Sender: FDA-Public Use
  Company Number: 2006UW16966

PATIENT
  Age: 76 Year
  Sex: Female
  Weight: 63.5 kg

DRUGS (3)
  1. NEXIUM [Suspect]
     Indication: DYSPHAGIA
     Route: 048
     Dates: start: 20060822
  2. BENACAR [Concomitant]
  3. FORTEL [Concomitant]

REACTIONS (2)
  - CHILLS [None]
  - HEADACHE [None]
